FAERS Safety Report 22239414 (Version 1)
Quarter: 2023Q2

REPORT INFORMATION
  Report Type: Report from Study
  Country: US (occurrence: US)
  Receive Date: 20230421
  Receipt Date: 20230421
  Transmission Date: 20230722
  Serious: Yes (Hospitalization, Other)
  Sender: FDA-Public Use
  Company Number: US-BIOVITRUM-2020US7599

PATIENT
  Age: 39 Year
  Sex: Female

DRUGS (5)
  1. KINERET [Suspect]
     Active Substance: ANAKINRA
     Indication: Still^s disease
     Dosage: DAILY
     Route: 058
     Dates: start: 20201119
  2. KINERET [Suspect]
     Active Substance: ANAKINRA
     Dosage: DAILY
     Route: 058
  3. KINERET [Suspect]
     Active Substance: ANAKINRA
     Dosage: DAILY
     Route: 058
  4. KINERET [Suspect]
     Active Substance: ANAKINRA
     Dosage: DAILY
     Route: 058
     Dates: start: 20201119
  5. KINERET [Suspect]
     Active Substance: ANAKINRA
     Dosage: DAILY
     Route: 058
     Dates: start: 20201118

REACTIONS (38)
  - Still^s disease [Unknown]
  - Condition aggravated [Unknown]
  - Haemophagocytic lymphohistiocytosis [Unknown]
  - Lung disorder [Unknown]
  - Cardiac disorder [Unknown]
  - Respiratory failure [Unknown]
  - Cytokine storm [Unknown]
  - Pulmonary oedema [Unknown]
  - Haemophagocytic lymphohistiocytosis [Unknown]
  - Intentional product misuse [Not Recovered/Not Resolved]
  - Rash [Unknown]
  - Injection site reaction [Recovering/Resolving]
  - Injection site pruritus [Not Recovered/Not Resolved]
  - Injection site erythema [Recovering/Resolving]
  - Injection site swelling [Not Recovered/Not Resolved]
  - Injection site urticaria [Not Recovered/Not Resolved]
  - Injection site pain [Recovering/Resolving]
  - Abdominal discomfort [Unknown]
  - Vomiting [Unknown]
  - Injection site rash [Unknown]
  - C-reactive protein increased [Unknown]
  - Nausea [Unknown]
  - Serum ferritin increased [Unknown]
  - Hepatic enzyme increased [Unknown]
  - Blood albumin decreased [Unknown]
  - Red blood cell sedimentation rate abnormal [Unknown]
  - Pyrexia [Unknown]
  - Injection site induration [Unknown]
  - Injection site cyst [Unknown]
  - Red blood cell count decreased [Unknown]
  - White blood cell count decreased [Unknown]
  - Peripheral swelling [Unknown]
  - Muscle spasms [Unknown]
  - Product use complaint [Unknown]
  - Platelet count decreased [Unknown]
  - COVID-19 [Unknown]
  - Feeling abnormal [Unknown]
  - Full blood count decreased [Unknown]

NARRATIVE: CASE EVENT DATE: 20201119
